FAERS Safety Report 4323059-9 (Version None)
Quarter: 2004Q1

REPORT INFORMATION
  Report Type: 
  Country: None (occurrence: None)
  Receive Date: 20040325
  Receipt Date: 20040316
  Transmission Date: 20041129
  Serious: Yes (Hospitalization)
  Sender: FDA-Public Use
  Company Number: 200411078FR

PATIENT
  Age: 90 Year
  Sex: Female

DRUGS (4)
  1. LASILIX 40 MG [Suspect]
     Route: 048
  2. MEPRONIZINE [Suspect]
     Route: 048
  3. XANAX [Suspect]
     Route: 048
  4. VALIUM [Suspect]
     Route: 048

REACTIONS (4)
  - DEHYDRATION [None]
  - HYPOGLYCAEMIC COMA [None]
  - RENAL FAILURE CHRONIC [None]
  - SOMNOLENCE [None]
